FAERS Safety Report 16274860 (Version 1)
Quarter: 2019Q2

REPORT INFORMATION
  Report Type: Spontaneous
  Country: CA (occurrence: CA)
  Receive Date: 20190506
  Receipt Date: 20190506
  Transmission Date: 20190711
  Serious: Yes (Other)
  Sender: FDA-Public Use
  Company Number: CA-BAYER-2019-087694

PATIENT
  Age: 60 Year
  Sex: Male
  Weight: 104 kg

DRUGS (5)
  1. NAPROXEN SODIUM ({= 220 MG) [Suspect]
     Active Substance: NAPROXEN SODIUM
     Indication: CYSTITIS
     Dosage: 200 MG, QOD
     Route: 048
  2. NAPROXEN SODIUM ({= 220 MG) [Suspect]
     Active Substance: NAPROXEN SODIUM
     Indication: ARTHRALGIA
  3. DELATESTRYL [Suspect]
     Active Substance: TESTOSTERONE ENANTHATE
     Indication: TRANSGENDER OPERATION
     Dosage: UNK UNK, OW
     Route: 042
  4. MOTRIN [Suspect]
     Active Substance: IBUPROFEN
     Indication: ARTHRALGIA
  5. MOTRIN [Suspect]
     Active Substance: IBUPROFEN
     Indication: CYSTITIS
     Dosage: 1 DF
     Route: 048

REACTIONS (1)
  - Lower gastrointestinal haemorrhage [Recovered/Resolved]
